FAERS Safety Report 14057896 (Version 2)
Quarter: 2017Q4

REPORT INFORMATION
  Report Type: Spontaneous
  Country: TR (occurrence: TR)
  Receive Date: 20171006
  Receipt Date: 20171023
  Transmission Date: 20180321
  Serious: Yes (Other)
  Sender: FDA-Public Use
  Company Number: TR-BAYER-2017-185511

PATIENT
  Age: 59 Year
  Sex: Female
  Weight: 81 kg

DRUGS (1)
  1. AVELOX [Suspect]
     Active Substance: MOXIFLOXACIN HYDROCHLORIDE
     Indication: INFLUENZA
     Dosage: 400 MG, QD
     Route: 048
     Dates: start: 201709, end: 201709

REACTIONS (14)
  - Confusional state [Recovered/Resolved]
  - Delirium [Recovered/Resolved]
  - Acute psychosis [Recovered/Resolved]
  - Product use in unapproved indication [None]
  - Pneumonia influenzal [Recovered/Resolved]
  - Insomnia [Recovered/Resolved]
  - Anxiety [Recovered/Resolved]
  - Depression [Recovered/Resolved]
  - Intentional product use issue [None]
  - Off label use [None]
  - Mental impairment [Recovered/Resolved]
  - Incorrect drug administration duration [None]
  - Abdominal pain upper [Recovered/Resolved]
  - Memory impairment [Recovered/Resolved]

NARRATIVE: CASE EVENT DATE: 201709
